FAERS Safety Report 9890361 (Version 2)
Quarter: 2014Q2

REPORT INFORMATION
  Report Type: Spontaneous
  Country: CZ (occurrence: CZ)
  Receive Date: 20140212
  Receipt Date: 20140418
  Transmission Date: 20141212
  Serious: Yes (Other)
  Sender: FDA-Public Use
  Company Number: CZ-JNJFOC-20140203232

PATIENT
  Age: 35 Year
  Sex: Female

DRUGS (19)
  1. IBUPROFEN [Suspect]
     Indication: PRODUCT USED FOR UNKNOWN INDICATION
     Route: 065
  2. TRAMADOL HCL [Suspect]
     Indication: STRESS
     Route: 065
  3. TRAMADOL HCL [Suspect]
     Indication: STRESS
     Dosage: 1,500 TO 2,250 MG DAILY
     Route: 065
  4. TRAMADOL HCL [Suspect]
     Indication: STRESS
     Route: 065
  5. TRAMADOL HCL [Suspect]
     Indication: EMOTIONAL DISORDER
     Dosage: 1,500 TO 2,250 MG DAILY
     Route: 065
  6. TRAMADOL HCL [Suspect]
     Indication: EMOTIONAL DISORDER
     Route: 065
  7. TRAMADOL HCL [Suspect]
     Indication: EMOTIONAL DISORDER
     Route: 065
  8. TRAMADOL HCL [Suspect]
     Indication: ANXIETY
     Route: 065
  9. TRAMADOL HCL [Suspect]
     Indication: ANXIETY
     Dosage: 1,500 TO 2,250 MG DAILY
     Route: 065
  10. TRAMADOL HCL [Suspect]
     Indication: ANXIETY
     Route: 065
  11. TRAMADOL HCL [Suspect]
     Indication: TOOTHACHE
     Route: 065
  12. TRAMADOL HCL [Suspect]
     Indication: TOOTHACHE
     Route: 065
  13. TRAMADOL HCL [Suspect]
     Indication: TOOTHACHE
     Dosage: 1,500 TO 2,250 MG DAILY
     Route: 065
  14. TRAMADOL HCL [Suspect]
     Indication: HEADACHE
     Route: 065
  15. TRAMADOL HCL [Suspect]
     Indication: HEADACHE
     Route: 065
  16. TRAMADOL HCL [Suspect]
     Indication: HEADACHE
     Dosage: 1,500 TO 2,250 MG DAILY
     Route: 065
  17. TRAMADOL HCL [Suspect]
     Indication: BACK PAIN
     Route: 065
  18. TRAMADOL HCL [Suspect]
     Indication: BACK PAIN
     Route: 065
  19. TRAMADOL HCL [Suspect]
     Indication: BACK PAIN
     Dosage: 1,500 TO 2,250 MG DAILY
     Route: 065

REACTIONS (2)
  - Drug dependence [Unknown]
  - Overdose [Unknown]
